FAERS Safety Report 10161765 (Version 1)
Quarter: 2014Q2

REPORT INFORMATION
  Report Type: Spontaneous
  Country: PL (occurrence: None)
  Receive Date: 20140507
  Receipt Date: 20140507
  Transmission Date: 20141212
  Serious: Yes (Other)
  Sender: FDA-Public Use
  Company Number: FK201401595

PATIENT
  Age: 25 Year
  Sex: Male

DRUGS (6)
  1. CISPLATIN (MANUFACTURER UNKNOWN) (CISPLATIN) (CISPLATIN) [Suspect]
  2. FLUOROURACIL [Suspect]
  3. DOXORUBICIN (MANUFACTURER UNKNOWN) (DOXORUBICIN HYDROCHLORIDE) (DOXORUBICIN HYDROCHLORIDE) [Suspect]
  4. LEUCOVORIN CALCIUM (MANUFACTURER UNKNOWN) (LEUCOVORIN CALCIUM) (LEUCOVORIN CALCIUM) [Suspect]
  5. IFOSFAMIDE (MANUFACTURER UNKNOWN) (IFOSFAMIDE) (IFOSFAMIDE) [Suspect]
  6. TRADITIONAL CHINESE MEDICINE (TRADITIONAL CHINESE MEIDICINE) (TRADITIONAL CHINESE MEDICINE) [Suspect]

REACTIONS (5)
  - Tubulointerstitial nephritis [None]
  - Renal failure [None]
  - Haemodialysis [None]
  - Dialysis [None]
  - Renal transplant [None]
